FAERS Safety Report 6692879-8 (Version None)
Quarter: 2010Q2

REPORT INFORMATION
  Report Type: 
  Country: None (occurrence: None)
  Receive Date: 20100419
  Receipt Date: 20100413
  Transmission Date: 20101027
  Serious: Yes (Death)
  Sender: FDA-Public Use
  Company Number: 1000010186

PATIENT
  Age: 2 Month
  Sex: Female

DRUGS (2)
  1. CELEXA [Suspect]
     Dosage: 40 MG (40 MG, 1 IN 1 D), TRANSPLACENTAL
     Route: 064
     Dates: start: 20081201, end: 20090810
  2. TERBUTALINE SULFATE [Concomitant]

REACTIONS (16)
  - AGITATION NEONATAL [None]
  - APPARENT LIFE THREATENING EVENT [None]
  - BLOOD CREATINE INCREASED [None]
  - CRYING [None]
  - DYSKINESIA [None]
  - INFANTILE COLIC [None]
  - MATERNAL DRUGS AFFECTING FOETUS [None]
  - MULTI-ORGAN FAILURE [None]
  - NASOPHARYNGITIS [None]
  - NORMOCHROMIC NORMOCYTIC ANAEMIA [None]
  - PYRUVATE KINASE DECREASED [None]
  - RED BLOOD CELL BURR CELLS PRESENT [None]
  - RESUSCITATION [None]
  - RHINORRHOEA [None]
  - TREMOR [None]
  - UNRESPONSIVE TO STIMULI [None]
